FAERS Safety Report 6266532-9 (Version None)
Quarter: 2009Q3

REPORT INFORMATION
  Report Type: 
  Country: None (occurrence: None)
  Receive Date: 20090710
  Receipt Date: 20090626
  Transmission Date: 20100115
  Serious: Yes (Hospitalization)
  Sender: FDA-Public Use
  Company Number: DSA_33937_2009

PATIENT
  Sex: Male

DRUGS (3)
  1. CARDIZEM LA [Suspect]
     Dosage: 120 MG QD, DF
     Dates: start: 20080101, end: 20090101
  2. CARDIZEM LA [Suspect]
     Dosage: 120 MG QD, DF
     Dates: start: 20090101
  3. BETAPACE [Concomitant]

REACTIONS (1)
  - HYPERTENSIVE CRISIS [None]
